FAERS Safety Report 22234141 (Version 2)
Quarter: 2023Q2

REPORT INFORMATION
  Report Type: Spontaneous
  Country: TR (occurrence: TR)
  Receive Date: 20230420
  Receipt Date: 20230428
  Transmission Date: 20230722
  Serious: Yes (Life-Threatening, Hospitalization, Other)
  Sender: FDA-Public Use
  Company Number: TR-KOREA IPSEN Pharma-2023-09083

PATIENT
  Age: 38 Year
  Sex: Female
  Weight: 47 kg

DRUGS (1)
  1. DYSPORT [Suspect]
     Active Substance: ABOBOTULINUMTOXINA
     Indication: Hyperhidrosis
     Dosage: SINGLE DOSE,ARMPITS AS 250 U+250 U. IT WAS DILUTED WITH 4 CC
     Route: 023
     Dates: start: 20230323

REACTIONS (2)
  - Botulism [Recovering/Resolving]
  - Overdose [Unknown]

NARRATIVE: CASE EVENT DATE: 20230323
